FAERS Safety Report 4979208-2 (Version None)
Quarter: 2006Q2

REPORT INFORMATION
  Report Type: 
  Country: None (occurrence: None)
  Receive Date: 20060421
  Receipt Date: 20060410
  Transmission Date: 20061013
  Serious: Yes (Other)
  Sender: FDA-Public Use
  Company Number: IL-GLAXOSMITHKLINE-B0420920A

PATIENT
  Age: 65 Year
  Sex: Female

DRUGS (1)
  1. TOPOTECAN [Suspect]
     Indication: OVARIAN CANCER
     Dosage: 6MG WEEKLY
     Route: 042
     Dates: start: 20060201

REACTIONS (1)
  - VISUAL ACUITY REDUCED [None]
